FAERS Safety Report 4828519-X (Version None)
Quarter: 2005Q4

REPORT INFORMATION
  Report Type: 
  Country: None (occurrence: None)
  Receive Date: 20051110
  Receipt Date: 20051028
  Transmission Date: 20060501
  Serious: Yes (Hospitalization)
  Sender: FDA-Public Use
  Company Number: 12783

PATIENT
  Age: 44 Year
  Sex: Male

DRUGS (8)
  1. METHOTREXATE [Suspect]
     Indication: RHEUMATOID ARTHRITIS
     Dosage: 37.5 MG OTH UNK
     Dates: start: 20020420, end: 20020527
  2. METHOTREXATE [Suspect]
     Indication: RHEUMATOID ARTHRITIS
     Dosage: 37.5 MG OTH UNK
  3. DICLOFENAC [Concomitant]
  4. CIPROXIN [Concomitant]
  5. FOLIC ACID [Concomitant]
  6. CO-PROXAMOL [Concomitant]
  7. SLOW-K [Concomitant]
  8. ZOTON [Concomitant]

REACTIONS (7)
  - ALOPECIA [None]
  - ANAL FISTULA [None]
  - GASTROINTESTINAL DISORDER [None]
  - HAEMORRHAGE [None]
  - HYPERSENSITIVITY [None]
  - PRESCRIBED OVERDOSE [None]
  - RENAL DISORDER [None]
